FAERS Safety Report 19520151 (Version 3)
Quarter: 2021Q3

REPORT INFORMATION
  Report Type: Spontaneous
  Country: US (occurrence: US)
  Receive Date: 20210712
  Receipt Date: 20210907
  Transmission Date: 20211014
  Serious: No
  Sender: FDA-Public Use
  Company Number: NVSC2021US153905

PATIENT
  Sex: Female

DRUGS (2)
  1. MEKINIST [Suspect]
     Active Substance: TRAMETINIB DIMETHYL SULFOXIDE
     Dosage: 1.5 MG, QD
     Route: 065
  2. MEKINIST [Suspect]
     Active Substance: TRAMETINIB DIMETHYL SULFOXIDE
     Indication: OVARIAN CANCER
     Dosage: 2 MG, QD
     Route: 048
     Dates: start: 20210510

REACTIONS (4)
  - Skin lesion [Unknown]
  - Product use in unapproved indication [Unknown]
  - Glossodynia [Unknown]
  - Diarrhoea [Unknown]
